FAERS Safety Report 5163663-1 (Version None)
Quarter: 2006Q4

REPORT INFORMATION
  Report Type: 
  Country: None (occurrence: None)
  Receive Date: 20061204
  Receipt Date: 20061130
  Transmission Date: 20070319
  Serious: Yes (Hospitalization)
  Sender: FDA-Public Use
  Company Number: BR-GLAXOSMITHKLINE-A0621734B

PATIENT
  Sex: Male
  Weight: 4.9 kg

DRUGS (3)
  1. AEROLIN [Suspect]
     Indication: PREMATURE LABOUR
     Dosage: 2MG PER DAY
     Dates: start: 20060919
  2. DACTIL OB [Concomitant]
     Dates: start: 20060831
  3. BUSCOPAN [Concomitant]
     Dates: start: 20060630

REACTIONS (4)
  - ADVERSE EVENT [None]
  - CAESAREAN SECTION [None]
  - DRUG EXPOSURE DURING PREGNANCY [None]
  - HOSPITALISATION [None]
